FAERS Safety Report 20410116 (Version 1)
Quarter: 2022Q1

REPORT INFORMATION
  Report Type: Spontaneous
  Country: US (occurrence: None)
  Receive Date: 20220131
  Receipt Date: 20220131
  Transmission Date: 20220423
  Serious: Yes (Life-Threatening, Hospitalization)
  Sender: FDA-Public Use
  Company Number: None

PATIENT
  Age: 73 Year
  Sex: Male

DRUGS (1)
  1. WARFARIN SODIUM [Suspect]
     Active Substance: WARFARIN SODIUM
     Indication: Atrial fibrillation
     Dates: start: 20090707

REACTIONS (9)
  - Cerebrovascular accident [None]
  - Dysphagia [None]
  - Hypotension [None]
  - Pulmonary embolism [None]
  - Brain natriuretic peptide increased [None]
  - Sepsis [None]
  - Brain stem infarction [None]
  - Cerebral infarction [None]
  - Vertebral artery thrombosis [None]

NARRATIVE: CASE EVENT DATE: 20220108
